FAERS Safety Report 17608053 (Version 2)
Quarter: 2020Q2

REPORT INFORMATION
  Report Type: Spontaneous
  Country: IT (occurrence: IT)
  Receive Date: 20200401
  Receipt Date: 20200413
  Transmission Date: 20200713
  Serious: Yes (Hospitalization, Other)
  Sender: FDA-Public Use
  Company Number: IT-AUROBINDO-AUR-APL-2020-015851

PATIENT
  Age: 44 Year
  Sex: Female
  Weight: 70 kg

DRUGS (7)
  1. DALTEPARIN [Suspect]
     Active Substance: DALTEPARIN
     Indication: ANTICOAGULANT THERAPY
     Dosage: 2500 INTERNATIONAL UNIT, ONCE A DAY
     Route: 065
  2. KETOROLAC [Suspect]
     Active Substance: KETOROLAC TROMETHAMINE
     Indication: PAIN MANAGEMENT
     Dosage: 30 MILLIGRAM, DAILY
     Route: 042
  3. SUFENTANIL [Suspect]
     Active Substance: SUFENTANIL
     Indication: PAIN MANAGEMENT
     Dosage: 0.5 MICROGRAM/MILLILITER (4 ML/H)
     Route: 065
  4. TRAMADOL. [Concomitant]
     Active Substance: TRAMADOL
     Indication: PAIN MANAGEMENT
     Dosage: 30 MILLIGRAM
     Route: 048
  5. METHYLPREDNISOLONE. [Concomitant]
     Active Substance: METHYLPREDNISOLONE
     Indication: SPINAL EPIDURAL HAEMATOMA
     Dosage: UNK
     Route: 065
  6. PARACETAMOL [Concomitant]
     Active Substance: ACETAMINOPHEN
     Indication: PAIN MANAGEMENT
     Dosage: 1000 MILLIGRAM, 3 TIMES A DAY
     Route: 065
  7. CHIROCAINE [Suspect]
     Active Substance: LEVOBUPIVACAINE HYDROCHLORIDE
     Indication: PAIN MANAGEMENT
     Dosage: UNK
     Route: 065

REACTIONS (8)
  - Spinal column injury [Not Recovered/Not Resolved]
  - Injury [Not Recovered/Not Resolved]
  - Bladder disorder [Recovering/Resolving]
  - Motor dysfunction [Recovering/Resolving]
  - Spinal epidural haematoma [Recovered/Resolved with Sequelae]
  - Urinary retention [Recovering/Resolving]
  - Ischaemia [Not Recovered/Not Resolved]
  - Drug ineffective [Unknown]
